FAERS Safety Report 8030914-5 (Version None)
Quarter: 2012Q1

REPORT INFORMATION
  Report Type: 
  Country: None (occurrence: None)
  Receive Date: 20120109
  Receipt Date: 20111228
  Transmission Date: 20120608
  Serious: Yes (Hospitalization)
  Sender: FDA-Public Use
  Company Number: DE-ELI_LILLY_AND_COMPANY-DE201112007600

PATIENT
  Sex: Female
  Weight: 66 kg

DRUGS (16)
  1. BROMAZEPAM [Concomitant]
     Indication: DEPRESSION
     Dosage: UNK
     Dates: start: 20110601
  2. METOCLOPRAMIDE [Concomitant]
     Indication: NAUSEA
     Dosage: UNK
     Dates: start: 20110807
  3. PANTOPRAZOLE SODIUM [Concomitant]
     Indication: PROPHYLAXIS AGAINST GASTROINTESTINAL ULCER
     Dosage: UNK
     Dates: start: 20110603
  4. TORSEMIDE [Concomitant]
     Indication: OEDEMA
     Dosage: UNK
     Dates: start: 20111122
  5. ONDANSETRON [Concomitant]
     Indication: NAUSEA
     Dosage: UNK
     Dates: start: 20111108
  6. POLYETHYLENE GLYCOL [Concomitant]
     Indication: CONSTIPATION
     Dosage: UNK
     Dates: start: 20110606
  7. PARACODIN BITARTRATE TAB [Concomitant]
     Indication: COUGH
     Dosage: UNK
     Dates: start: 20110601
  8. FOLSAN [Concomitant]
     Indication: PREMEDICATION
     Dosage: UNK
     Dates: start: 20110608
  9. DIPYRONE TAB [Concomitant]
     Indication: PAIN
     Dosage: UNK
     Dates: start: 20110601
  10. HALDOL [Concomitant]
     Indication: NAUSEA
     Dosage: UNK
     Dates: start: 20110714
  11. RAMUCIRUMAB (1121B) (LY3009806) [Suspect]
     Indication: NON-SMALL CELL LUNG CANCER
     Dosage: 10 MG/KG, OTHER
     Route: 042
     Dates: start: 20110621, end: 20111219
  12. OXYCODONE HYDROCHLORIDE [Concomitant]
     Indication: BACK PAIN
     Dosage: UNK
     Dates: start: 20110614
  13. PEMETREXED [Suspect]
     Indication: NON-SMALL CELL LUNG CANCER
     Dosage: 500 MG/M2, OTHER
     Route: 042
     Dates: start: 20110621, end: 20111219
  14. DEXAMETHASONE SODIUM PHOSPHATE [Concomitant]
     Indication: NAUSEA
     Dosage: UNK
     Dates: start: 20111108
  15. NALOXONE [Concomitant]
     Indication: PAIN
     Dosage: UNK
     Dates: start: 20110604
  16. DICLOFENAC [Concomitant]
     Indication: PAIN
     Dosage: UNK
     Dates: start: 20110614

REACTIONS (1)
  - GASTRITIS [None]
